FAERS Safety Report 7653990-8 (Version None)
Quarter: 2011Q3

REPORT INFORMATION
  Report Type: 
  Country: None (occurrence: None)
  Receive Date: 20110803
  Receipt Date: 20110721
  Transmission Date: 20111222
  Serious: No
  Sender: FDA-Public Use
  Company Number: PHHY2011US62789

PATIENT
  Sex: Male

DRUGS (5)
  1. OMEPRAZOLE [Concomitant]
     Dosage: 20 MG, QD
  2. SIMVASTATIN [Concomitant]
     Dosage: 5 MG, UNK
  3. DIOVAN [Concomitant]
  4. TASIGNA [Suspect]
     Dosage: 300 MG, BID
     Route: 048
  5. IBUPROFEN [Concomitant]

REACTIONS (1)
  - LIVER FUNCTION TEST ABNORMAL [None]
